FAERS Safety Report 8112344-0 (Version None)
Quarter: 2012Q1

REPORT INFORMATION
  Report Type: 
  Country: None (occurrence: None)
  Receive Date: 20120203
  Receipt Date: 20111108
  Transmission Date: 20120608
  Serious: No
  Sender: FDA-Public Use
  Company Number: US-ASTRAZENECA-2011SE67487

PATIENT
  Age: 47 Year
  Sex: Female

DRUGS (5)
  1. ACETAMINOPHEN-CODEIN 3 [Concomitant]
  2. CALCIUM CARBONATE-VITAMIN D [Concomitant]
  3. CALCITRIOL [Concomitant]
  4. VANDETANIB [Suspect]
     Indication: THYROID CANCER
     Route: 048
  5. SYNTHROID [Concomitant]

REACTIONS (4)
  - PALPITATIONS [None]
  - MYALGIA [None]
  - CHEST DISCOMFORT [None]
  - STOMATITIS [None]
